FAERS Safety Report 20860363 (Version 1)
Quarter: 2022Q2

REPORT INFORMATION
  Report Type: Spontaneous
  Country: US (occurrence: None)
  Receive Date: 20220520
  Receipt Date: 20220520
  Transmission Date: 20220720
  Serious: Yes (Hospitalization)
  Sender: FDA-Public Use
  Company Number: None

PATIENT
  Age: 77 Year
  Sex: Female

DRUGS (1)
  1. BOSULIF [Suspect]
     Active Substance: BOSUTINIB MONOHYDRATE
     Indication: Chronic myeloid leukaemia
     Dosage: DOSE AND FREQUENCY AT TIME OF EVENT: 500 MG FIVE DAYS EACH WEEK??
     Route: 048
     Dates: start: 20150903

REACTIONS (1)
  - Pneumonia [None]

NARRATIVE: CASE EVENT DATE: 20220512
